FAERS Safety Report 4648653-7 (Version None)
Quarter: 2005Q2

REPORT INFORMATION
  Report Type: 
  Country: None (occurrence: None)
  Receive Date: 20050427
  Receipt Date: 20040415
  Transmission Date: 20051028
  Serious: Yes (Death)
  Sender: FDA-Public Use
  Company Number: HQWYE079618APR05

PATIENT
  Age: 62 Year
  Sex: Male

DRUGS (5)
  1. CORDARONE [Suspect]
     Dosage: 0.8 G 1X PER 1 DAY
     Route: 048
  2. DIGOXIN [Concomitant]
  3. WARFARIN SODIUM [Concomitant]
  4. POTASSIUM CHLORIDE [Concomitant]
  5. FUROSEMIDE [Concomitant]

REACTIONS (1)
  - ARRHYTHMIA [None]
